FAERS Safety Report 6463086-9 (Version None)
Quarter: 2009Q4

REPORT INFORMATION
  Report Type: 
  Country: None (occurrence: None)
  Receive Date: 20091130
  Receipt Date: 20091123
  Transmission Date: 20100525
  Serious: Yes (Other)
  Sender: FDA-Public Use
  Company Number: FI-AMGEN-UK373679

PATIENT
  Sex: Female

DRUGS (1)
  1. NPLATE [Suspect]
     Indication: THROMBOCYTOPENIA

REACTIONS (2)
  - ATRIAL THROMBOSIS [None]
  - REFUSAL OF TREATMENT BY PATIENT [None]
